FAERS Safety Report 10100817 (Version 3)
Quarter: 2014Q2

REPORT INFORMATION
  Report Type: Report from Study
  Country: DE (occurrence: DE)
  Receive Date: 20140423
  Receipt Date: 20140611
  Transmission Date: 20141212
  Serious: Yes (Hospitalization, Other)
  Sender: FDA-Public Use
  Company Number: DE-MERCK-1404DEU008559

PATIENT
  Age: 22 Year
  Sex: Male
  Weight: 61.2 kg

DRUGS (56)
  1. CANCIDAS [Suspect]
     Indication: INFECTION PROPHYLAXIS
     Dosage: UNK
     Route: 042
     Dates: start: 20140122, end: 20140122
  2. CANCIDAS [Suspect]
     Dosage: UNK
     Route: 042
     Dates: start: 20140123
  3. DECORTIN H [Suspect]
     Indication: COLITIS ULCERATIVE
     Dosage: UNK
     Dates: start: 20131125
  4. TAVOR (LORAZEPAM) [Suspect]
     Indication: PAIN
     Dosage: UNK
     Dates: start: 20140119, end: 20140119
  5. TAVOR (LORAZEPAM) [Suspect]
     Dosage: UNK
     Dates: start: 20140121, end: 20140121
  6. TARGIN [Suspect]
     Indication: PAIN
     Dosage: UNK
     Route: 048
     Dates: start: 20140118, end: 20140125
  7. PASPERTIN [Suspect]
     Indication: NAUSEA
     Dosage: UNK
     Route: 042
     Dates: start: 20140121, end: 20140125
  8. OXYGESIC [Suspect]
     Indication: PAIN
     Dosage: UNK
     Dates: start: 20140120, end: 20140120
  9. OXYGESIC [Suspect]
     Dosage: UNK
     Route: 048
     Dates: start: 20140123, end: 20140125
  10. DIPIDOLOR [Suspect]
     Indication: PAIN
     Dosage: UNK
     Dates: start: 20140116, end: 20140116
  11. DIPIDOLOR [Suspect]
     Dosage: UNK
     Dates: start: 20140118, end: 20140122
  12. ONDANSETRON [Suspect]
     Indication: NAUSEA
     Dosage: UNK
     Dates: start: 20140121, end: 20140121
  13. ONDANSETRON [Suspect]
     Dosage: UNK
     Dates: start: 20140124
  14. PIRITRAMIDE [Suspect]
     Indication: PAIN
     Dosage: UNK
     Route: 042
     Dates: start: 20140123, end: 20140123
  15. PIRITRAMIDE [Suspect]
     Dosage: UNK
     Route: 042
     Dates: start: 20140125, end: 20140125
  16. IMODIUM [Concomitant]
     Indication: COLITIS ULCERATIVE
     Dosage: UNK
     Dates: start: 20140104
  17. PANTOZOL [Concomitant]
     Indication: COLITIS ULCERATIVE
     Dosage: UNK
     Dates: start: 20131203
  18. ROPIVACAINE [Concomitant]
     Indication: PAIN
     Dosage: UNK
     Dates: start: 201401
  19. ROPIVACAINE [Concomitant]
     Indication: SEDATIVE THERAPY
     Dosage: UNK
     Dates: start: 20140116, end: 20140116
  20. NAROPIN [Concomitant]
     Indication: PAIN
     Dosage: UNK
     Dates: start: 20140116, end: 20140116
  21. NAROPIN [Concomitant]
     Dosage: UNK
     Dates: start: 20140118, end: 20140121
  22. ACETAMINOPHEN [Concomitant]
     Indication: PAIN
     Dosage: UNK
     Dates: start: 20140116, end: 20140116
  23. ACETAMINOPHEN [Concomitant]
     Dosage: UNK
     Dates: start: 20140118, end: 20140120
  24. ACETAMINOPHEN [Concomitant]
     Dosage: UNK
     Dates: start: 20140122, end: 20140122
  25. IBUPROFEN [Concomitant]
     Indication: PAIN
     Dosage: UNK
     Dates: start: 20140119, end: 20140119
  26. SEVREDOL [Concomitant]
     Indication: PAIN
     Dosage: UNK
     Dates: start: 20140120, end: 20140121
  27. PIPERACILLIN SODIUM (+) TAZOBACTAM SODIUM [Concomitant]
     Indication: INFECTION PROPHYLAXIS
     Dosage: UNK
     Dates: start: 20140120
  28. VFEND [Concomitant]
     Indication: INFECTION PROPHYLAXIS
     Dosage: UNK
     Dates: start: 20140121
  29. MERONEM [Concomitant]
     Indication: INFECTION PROPHYLAXIS
     Dosage: UNK
     Dates: start: 20040121
  30. NEOSTIGMINE METHYLSULFATE [Concomitant]
     Indication: GASTROINTESTINAL MOTILITY DISORDER
     Dosage: UNK
     Dates: start: 20140120, end: 20140120
  31. BUSCOPAN [Concomitant]
     Indication: COLITIS ULCERATIVE
     Dosage: UNK
     Dates: start: 20140107, end: 201401
  32. VIGANTOLETTEN [Concomitant]
     Indication: VITAMIN SUPPLEMENTATION
     Dosage: UNK
     Dates: start: 20140108
  33. CLEXANE (ENOXAPARIN SODIUM) [Concomitant]
     Indication: THROMBOSIS PROPHYLAXIS
     Dosage: UNK
     Dates: start: 20140116, end: 20140116
  34. CLEXANE (ENOXAPARIN SODIUM) [Concomitant]
     Dosage: UNK
     Dates: start: 20140118
  35. CEFTRIAXONE SODIUM [Concomitant]
     Indication: INFECTION PROPHYLAXIS
     Dosage: UNK
     Dates: start: 20140108
  36. ROCEPHIN [Concomitant]
     Indication: INFECTION PROPHYLAXIS
     Dosage: UNK
     Dates: start: 20140114, end: 20140116
  37. ROCEPHIN [Concomitant]
     Dosage: UNK
     Dates: start: 20140119, end: 20140120
  38. PROPOFOL [Concomitant]
     Indication: SEDATIVE THERAPY
     Dosage: UNK
     Dates: start: 20140116, end: 20140116
  39. MOVIPREP [Concomitant]
     Indication: LAXATIVE SUPPORTIVE CARE
     Dosage: UNK
     Dates: start: 20140115, end: 20140115
  40. STERO ISO [Concomitant]
     Indication: ELECTROLYTE SUBSTITUTION THERAPY
     Dosage: UNK
     Dates: start: 20140115, end: 20140116
  41. STERO ISO [Concomitant]
     Dosage: UNK
     Dates: start: 20140118
  42. K-DUR [Concomitant]
     Indication: MINERAL SUPPLEMENTATION
     Dosage: UNK
     Dates: start: 20140115, end: 20140115
  43. TRANXILIUM [Concomitant]
     Indication: SEDATION
     Dosage: UNK
     Dates: start: 20140115, end: 20140115
  44. FENTANYL [Concomitant]
     Indication: SEDATIVE THERAPY
     Dosage: UNK
     Dates: start: 20140116, end: 20140116
  45. CISATRACURIUM BESYLATE [Concomitant]
     Indication: RELAXATION THERAPY
     Dosage: UNK
     Dates: start: 20140116, end: 20140116
  46. ZIENAM [Concomitant]
     Indication: INFECTION PROPHYLAXIS
     Dosage: UNK
     Dates: start: 20140116, end: 20140116
  47. GELAFUNDIN [Concomitant]
     Indication: SUPPLEMENTATION THERAPY
     Dosage: UNK
     Dates: start: 20140116, end: 20140116
  48. SEVOFLURANE [Concomitant]
     Indication: SEDATIVE THERAPY
     Dosage: UNK
     Dates: start: 20140116, end: 20140116
  49. IMERON [Concomitant]
     Indication: IMAGING PROCEDURE
     Dosage: UNK
     Dates: start: 20140121, end: 20140121
  50. NUTRIFLEX [Concomitant]
     Indication: SUPPLEMENTATION THERAPY
     Dosage: UNK
     Dates: start: 20140118
  51. SODIUM CHLORIDE [Concomitant]
     Indication: SUPPLEMENTATION THERAPY
     Dosage: UNK
     Dates: start: 20140118
  52. ACETYLCYSTEINE [Concomitant]
     Indication: COUGH
     Dosage: UNK
     Dates: start: 20140121
  53. MAALOXAN [Concomitant]
     Indication: ABDOMINAL PAIN UPPER
     Dosage: UNK
     Dates: start: 20140119, end: 20140120
  54. VOMEX [Concomitant]
     Indication: NAUSEA
     Dosage: UNK
     Dates: start: 20140119, end: 20140120
  55. PARACODIN (DIHYDROCODEINE BITARTRATE) [Concomitant]
     Indication: COUGH
     Dosage: UNK
     Dates: start: 20140120, end: 20140120
  56. FREKAVIT WATER SOLUBLE [Concomitant]
     Indication: SUPPLEMENTATION THERAPY
     Dosage: UNK
     Dates: start: 20140122, end: 20140127

REACTIONS (2)
  - Delirium [Recovered/Resolved]
  - Colitis ulcerative [Recovered/Resolved]
